FAERS Safety Report 9812395 (Version 2)
Quarter: 2014Q1

REPORT INFORMATION
  Report Type: Spontaneous
  Country: US (occurrence: US)
  Receive Date: 20140113
  Receipt Date: 20140129
  Transmission Date: 20141002
  Serious: Yes (Hospitalization)
  Sender: FDA-Public Use
  Company Number: US-BIOGENIDEC-2014BI002623

PATIENT
  Age: 36 Year
  Sex: Female

DRUGS (3)
  1. TYSABRI [Suspect]
     Indication: RELAPSING-REMITTING MULTIPLE SCLEROSIS
     Route: 042
     Dates: start: 20130201
  2. TOPIRAMATE [Concomitant]
     Indication: MIGRAINE
  3. BACLOFEN [Concomitant]

REACTIONS (6)
  - Hemiparesis [Unknown]
  - Arthralgia [Not Recovered/Not Resolved]
  - Urinary tract infection [Unknown]
  - Dizziness [Unknown]
  - Raynaud^s phenomenon [Not Recovered/Not Resolved]
  - Optic neuritis [Recovered/Resolved]
